FAERS Safety Report 22258338 (Version 1)
Quarter: 2023Q2

REPORT INFORMATION
  Report Type: Spontaneous
  Country: DK (occurrence: DK)
  Receive Date: 20230427
  Receipt Date: 20230427
  Transmission Date: 20230722
  Serious: Yes (Hospitalization)
  Sender: FDA-Public Use
  Company Number: None

PATIENT
  Age: 28 Year
  Sex: Female
  Weight: 95 kg

DRUGS (7)
  1. INFLIXIMAB [Concomitant]
     Active Substance: INFLIXIMAB
     Indication: Psoriatic arthropathy
     Dosage: UNK
     Dates: start: 20220601
  2. SERTRALINE [Concomitant]
     Active Substance: SERTRALINE HYDROCHLORIDE
     Indication: Post-traumatic stress disorder
     Dosage: UNK
     Dates: start: 20210823
  3. ACETAMINOPHEN [Concomitant]
     Active Substance: ACETAMINOPHEN
     Indication: Pain
     Dosage: UNK
     Dates: start: 20180219
  4. ACICLODAN [Concomitant]
     Indication: Herpes virus infection
     Dosage: UNK
     Dates: start: 20180718
  5. ETODOLAC [Concomitant]
     Active Substance: ETODOLAC
     Indication: Pain
     Dosage: UNK
     Dates: start: 20191205
  6. WEGOVY [Suspect]
     Active Substance: SEMAGLUTIDE
     Indication: Overweight
     Dosage: 2.4 MG, QW
     Route: 058
     Dates: start: 20230212
  7. SULFASALAZINE [Concomitant]
     Active Substance: SULFASALAZINE
     Indication: Rheumatoid arthritis
     Dosage: UNK
     Dates: start: 20200923

REACTIONS (3)
  - Gastric ulcer haemorrhage [Recovered/Resolved]
  - Haematemesis [Recovered/Resolved]
  - Haematochezia [Recovered/Resolved]

NARRATIVE: CASE EVENT DATE: 20230321
